FAERS Safety Report 21943318 (Version 5)
Quarter: 2023Q4

REPORT INFORMATION
  Report Type: Spontaneous
  Country: US (occurrence: US)
  Receive Date: 20230202
  Receipt Date: 20231106
  Transmission Date: 20240110
  Serious: Yes (Hospitalization)
  Sender: FDA-Public Use
  Company Number: US-BRISTOL-MYERS SQUIBB COMPANY-2023-013702

PATIENT
  Age: 72 Year
  Sex: Female
  Weight: 33.11 kg

DRUGS (2)
  1. LENALIDOMIDE [Suspect]
     Active Substance: LENALIDOMIDE
     Indication: Plasma cell myeloma
     Route: 048
     Dates: start: 20211025, end: 20230113
  2. LENALIDOMIDE [Suspect]
     Active Substance: LENALIDOMIDE
     Dosage: 1 IN 2 DAYS (EVERY OTHER DAY) ON DAYS 1-28 EVERY 28 DAYS
     Route: 048
     Dates: start: 20221111

REACTIONS (10)
  - Hypotension [Recovered/Resolved]
  - Anaemia [Recovered/Resolved]
  - Diarrhoea [Recovering/Resolving]
  - Laboratory test abnormal [Unknown]
  - Platelet count decreased [Not Recovered/Not Resolved]
  - Decreased appetite [Not Recovered/Not Resolved]
  - Gastrointestinal disorder [Unknown]
  - White blood cell count decreased [Unknown]
  - Off label use [Unknown]
  - Haemoglobin decreased [Not Recovered/Not Resolved]

NARRATIVE: CASE EVENT DATE: 20230113
